FAERS Safety Report 14638259 (Version 3)
Quarter: 2018Q2

REPORT INFORMATION
  Report Type: Spontaneous
  Country: FR (occurrence: FR)
  Receive Date: 20180314
  Receipt Date: 20180604
  Transmission Date: 20180711
  Serious: Yes (Life-Threatening)
  Sender: FDA-Public Use
  Company Number: FR-NOVOPROD-590066

PATIENT
  Age: 77 Year
  Sex: Male

DRUGS (20)
  1. DIFFU K [Suspect]
     Active Substance: POTASSIUM CHLORIDE
     Indication: HYPOKALAEMIA
     Dosage: 1800,MG
     Route: 048
     Dates: start: 20180206, end: 20180212
  2. DIFFU K [Suspect]
     Active Substance: POTASSIUM CHLORIDE
     Dosage: 600 MG, QD
     Route: 048
     Dates: start: 20180212
  3. KARDEGIC [Suspect]
     Active Substance: ASPIRIN DL-LYSINE
     Indication: MYOCARDIAL ISCHAEMIA
     Dosage: 75 MG, QD
     Route: 048
  4. BISOCE [Suspect]
     Active Substance: BISOPROLOL
     Indication: MYOCARDIAL ISCHAEMIA
     Dosage: 1.25 MG, QD(CHARACTERISATION OF DRUG ROLE : INTERACTING)
     Route: 048
     Dates: end: 20180213
  5. LYRICA [Suspect]
     Active Substance: PREGABALIN
     Indication: DRUG ADMINISTRATION ERROR
     Dosage: 25 MG
     Route: 048
     Dates: start: 20180212, end: 20180212
  6. RAMIPRIL MYLAN [Suspect]
     Active Substance: RAMIPRIL
     Indication: DRUG ADMINISTRATION ERROR
     Dosage: 2.5 MG
     Route: 048
     Dates: start: 20180212, end: 20180212
  7. ENTRESTO [Concomitant]
     Active Substance: SACUBITRIL\VALSARTAN
     Indication: CARDIAC FAILURE
     Dosage: 1 DF, BID (24 MG/26 MG FILM-COATED TABLETS )
     Route: 048
     Dates: end: 20180206
  8. ALLOPURINOL ARROW [Concomitant]
     Active Substance: ALLOPURINOL
     Indication: PRODUCT USED FOR UNKNOWN INDICATION
     Dosage: 100 MG, QD
     Route: 048
  9. FUROSEMIDE ARROW [Suspect]
     Active Substance: FUROSEMIDE
     Dosage: 40 MG, QD
     Route: 048
     Dates: end: 20180216
  10. NOVORAPID [Suspect]
     Active Substance: INSULIN ASPART
     Indication: TYPE 2 DIABETES MELLITUS
     Dosage: AS NEEDED(SELON BESOIN )
     Route: 058
     Dates: start: 20180206
  11. JANUVIA [Suspect]
     Active Substance: SITAGLIPTIN PHOSPHATE
     Indication: TYPE 2 DIABETES MELLITUS
     Dosage: 50 MG, QD
     Route: 048
     Dates: start: 20180208
  12. STILNOX [Concomitant]
     Active Substance: ZOLPIDEM TARTRATE
     Indication: SLEEP DISORDER
     Dosage: 10 MG, QD
     Route: 048
     Dates: end: 20180211
  13. OXYBUTIN [Suspect]
     Active Substance: OXYBUTYNIN
     Indication: DRUG ADMINISTRATION ERROR
     Dosage: 5 MG
     Route: 048
     Dates: start: 20180212, end: 20180212
  14. LOXEN                              /00639802/ [Suspect]
     Active Substance: NICARDIPINE HYDROCHLORIDE
     Indication: DRUG ADMINISTRATION ERROR
     Dosage: 50 MG
     Route: 048
     Dates: start: 20180212, end: 20180212
  15. ATENOLOL ARROW [Suspect]
     Active Substance: ATENOLOL
     Indication: DRUG ADMINISTRATION ERROR
     Dosage: 7.5 MG
     Route: 048
     Dates: start: 20180212, end: 20180212
  16. FUROSEMIDE ARROW [Suspect]
     Active Substance: FUROSEMIDE
     Dosage: 40 MG, QD(+ 40 MG ON 12-FEB-2018)
     Route: 048
     Dates: start: 20180212, end: 20180212
  17. KARDEGIC [Suspect]
     Active Substance: ASPIRIN DL-LYSINE
     Dosage: 75 MG, QD(ONLY ON 18-FEB-2018 + 75 MG)
     Route: 048
     Dates: start: 20180218, end: 20180218
  18. METFORMIN [Concomitant]
     Active Substance: METFORMIN HYDROCHLORIDE
     Indication: TYPE 2 DIABETES MELLITUS
     Dosage: 500 MG, QD
     Route: 048
  19. FUROSEMIDE ARROW [Suspect]
     Active Substance: FUROSEMIDE
     Indication: CARDIAC FAILURE
     Dosage: 40 MG, QD
     Route: 048
     Dates: start: 20180209
  20. ATORVASTATINE                      /01326101/ [Concomitant]
     Active Substance: ATORVASTATIN
     Indication: DYSLIPIDAEMIA
     Dosage: 20 MG, QD
     Route: 048

REACTIONS (4)
  - Cardiac failure [Not Recovered/Not Resolved]
  - Cardiovascular insufficiency [Not Recovered/Not Resolved]
  - Cardiac output decreased [Not Recovered/Not Resolved]
  - Confusional state [Recovered/Resolved]

NARRATIVE: CASE EVENT DATE: 20180212
